FAERS Safety Report 4589477-9 (Version None)
Quarter: 2005Q1

REPORT INFORMATION
  Report Type: 
  Country: None (occurrence: None)
  Receive Date: 20050216
  Receipt Date: 20050208
  Transmission Date: 20050727
  Serious: Yes (Other)
  Sender: FDA-Public Use
  Company Number: GBWYE416010FEB05

PATIENT
  Age: 45 Year
  Sex: Female

DRUGS (1)
  1. EFFEXOR XR [Suspect]
     Indication: DEPRESSION
     Dosage: 75MG FREQUENCY ORAL
     Route: 048
     Dates: start: 20031101, end: 20040701

REACTIONS (5)
  - ANXIETY [None]
  - CONDITION AGGRAVATED [None]
  - DRUG WITHDRAWAL SYNDROME [None]
  - LOSS OF CONSCIOUSNESS [None]
  - VOMITING [None]
